FAERS Safety Report 22081159 (Version 1)
Quarter: 2023Q1

REPORT INFORMATION
  Report Type: Spontaneous
  Country: BR (occurrence: BR)
  Receive Date: 20230309
  Receipt Date: 20230309
  Transmission Date: 20230417
  Serious: Yes (Death)
  Sender: FDA-Public Use
  Company Number: BR-002147023-NVSC2023BR047431

PATIENT

DRUGS (1)
  1. RUXOLITINIB [Suspect]
     Active Substance: RUXOLITINIB
     Indication: Product used for unknown indication
     Dosage: UNK
     Route: 065

REACTIONS (1)
  - Death [Fatal]
